FAERS Safety Report 25672570 (Version 1)
Quarter: 2025Q3

REPORT INFORMATION
  Report Type: Spontaneous
  Country: US (occurrence: US)
  Receive Date: 20250812
  Receipt Date: 20250812
  Transmission Date: 20251020
  Serious: No
  Sender: SANOFI AVENTIS
  Company Number: US-SANOFI-02615044

PATIENT
  Age: 17 Year
  Sex: Female

DRUGS (3)
  1. DUPIXENT [Suspect]
     Active Substance: DUPILUMAB
     Indication: Chronic spontaneous urticaria
     Route: 065
     Dates: start: 20250805
  2. DOXEPIN [Concomitant]
     Active Substance: DOXEPIN
     Indication: Anxiety
     Dates: start: 20250805
  3. DOXEPIN [Concomitant]
     Active Substance: DOXEPIN
     Indication: Urticaria

REACTIONS (1)
  - Cyanosis [Unknown]

NARRATIVE: CASE EVENT DATE: 20250806
